APPROVED DRUG PRODUCT: TALWIN
Active Ingredient: PENTAZOCINE LACTATE
Strength: EQ 30MG BASE/ML
Dosage Form/Route: INJECTABLE;INJECTION
Application: N016194 | Product #001
Applicant: HOSPIRA INC
Approved: Approved Prior to Jan 1, 1982 | RLD: Yes | RS: No | Type: DISCN